FAERS Safety Report 8866182 (Version 20)
Quarter: 2015Q1

REPORT INFORMATION
  Report Type: Report from Study
  Country: US (occurrence: US)
  Receive Date: 20121025
  Receipt Date: 20150327
  Transmission Date: 20150721
  Serious: Yes (Hospitalization, Congenital Anomaly, Other)
  Sender: FDA-Public Use
  Company Number: US-ROCHE-1084783

PATIENT
  Age: 0 Day
  Sex: Female
  Weight: 1.36 kg

DRUGS (18)
  1. OMALIZUMAB [Suspect]
     Active Substance: OMALIZUMAB
     Indication: PRODUCT USED FOR UNKNOWN INDICATION
     Dosage: LAST DOSE PRIOR TO SAE (SMALL STATURE): 11/JUN/2013?LAST DOSE PRIOR TO SAE (TRICUSPID AND MITRAL VAL
     Route: 064
  2. TYLENOL [Concomitant]
     Active Substance: ACETAMINOPHEN
     Indication: PYREXIA
     Dosage: AS NEEDED
     Route: 048
  3. FLUTICASONE [Concomitant]
     Active Substance: FLUTICASONE\FLUTICASONE PROPIONATE
  4. PREDNISOLON [Concomitant]
     Active Substance: PREDNISOLONE
  5. FLOVENT [Concomitant]
     Active Substance: FLUTICASONE PROPIONATE
     Indication: COUGH
     Route: 048
  6. FLOVENT [Concomitant]
     Active Substance: FLUTICASONE PROPIONATE
     Indication: ASTHMA
  7. MOTRIN [Concomitant]
     Active Substance: IBUPROFEN
     Indication: PYREXIA
  8. SYNAGIS [Concomitant]
     Active Substance: PALIVIZUMAB
     Route: 065
  9. VENTOLIN [Concomitant]
     Active Substance: ALBUTEROL SULFATE
     Indication: ASTHMA
     Dosage: 2 DOSES EVERY FOUR HOURS
     Route: 048
  10. NASONEX [Concomitant]
     Active Substance: MOMETASONE FUROATE
     Route: 045
  11. IBUPROFEN. [Concomitant]
     Active Substance: IBUPROFEN
     Dosage: AS NEEDED
     Route: 048
  12. AMOXICILLIN. [Concomitant]
     Active Substance: AMOXICILLIN
     Indication: PHARYNGITIS STREPTOCOCCAL
  13. LANSOPRAZOLE. [Concomitant]
     Active Substance: LANSOPRAZOLE
     Indication: GASTROOESOPHAGEAL REFLUX DISEASE
     Route: 048
  14. ZYRTEC [Concomitant]
     Active Substance: CETIRIZINE HYDROCHLORIDE
     Indication: HYPERSENSITIVITY
     Dosage: DAILY
     Route: 048
  15. CIPRODEX (CIPROFLOXACIN/DEXAMETHASONE) [Concomitant]
     Indication: EAR INFECTION
  16. OMALIZUMAB [Suspect]
     Active Substance: OMALIZUMAB
     Route: 063
  17. ERYPED [Concomitant]
     Active Substance: ERYTHROMYCIN ETHYLSUCCINATE
     Route: 048
  18. SIMETHICONE [Concomitant]
     Active Substance: DIMETHICONE\SILICON DIOXIDE\SIMETHICONE
     Route: 048
     Dates: start: 201211

REACTIONS (13)
  - Mitral valve incompetence [Recovered/Resolved]
  - Congenital skin dimples [Recovered/Resolved]
  - Gastrooesophageal reflux disease [Recovered/Resolved]
  - Premature baby [Recovered/Resolved]
  - Torticollis [Recovered/Resolved]
  - Oxygen saturation decreased [Recovering/Resolving]
  - Body height below normal [Not Recovered/Not Resolved]
  - Exposure during breast feeding [Unknown]
  - Tricuspid valve incompetence [Recovered/Resolved]
  - Positional plagiocephaly [Recovered/Resolved]
  - Maternal exposure timing unspecified [Unknown]
  - Wheezing [Recovering/Resolving]
  - Respiratory distress [Recovering/Resolving]

NARRATIVE: CASE EVENT DATE: 20120620
